FAERS Safety Report 7495453-9 (Version None)
Quarter: 2011Q2

REPORT INFORMATION
  Report Type: 
  Country: None (occurrence: None)
  Receive Date: 20110523
  Receipt Date: 20110404
  Transmission Date: 20111010
  Serious: No
  Sender: FDA-Public Use
  Company Number: US-TYCO HEALTHCARE/MALLINCKRODT-T201100718

PATIENT
  Sex: Female
  Weight: 41.27 kg

DRUGS (2)
  1. FENTANYL-100 [Suspect]
     Indication: FIBROMYALGIA
     Dosage: 250 UG/HR, Q 72 HOURS
     Route: 062
     Dates: start: 20110329
  2. FENTANYL-100 [Suspect]
     Indication: PAIN

REACTIONS (6)
  - NAUSEA [None]
  - INSOMNIA [None]
  - PRURITUS [None]
  - WRONG TECHNIQUE IN DRUG USAGE PROCESS [None]
  - VOMITING [None]
  - RASH [None]
